FAERS Safety Report 6844923-2 (Version None)
Quarter: 2010Q3

REPORT INFORMATION
  Report Type: 
  Country: None (occurrence: None)
  Receive Date: 20100713
  Receipt Date: 20100705
  Transmission Date: 20110219
  Serious: Yes (Hospitalization)
  Sender: FDA-Public Use
  Company Number: 636054

PATIENT
  Age: 55 Year
  Sex: Male

DRUGS (12)
  1. FOSPHENYTOIN SODIUM [Suspect]
     Indication: CONVULSION PROPHYLAXIS
     Dosage: 1 G (GRAM(S), INTRAVENOUS DRIP
     Route: 041
  2. PHENYTOIN [Suspect]
     Indication: CONVULSION PROPHYLAXIS
     Dosage: 100 MG MILLIGRAM(S), INTRAVENOUS
     Route: 042
  3. ESOMEPRAZOLE MAGNESIUM [Suspect]
     Indication: PRODUCT USED FOR UNKNOWN INDICATION
     Dosage: 40 MG MILLIGRAM(S), INTRAVENOUS
     Route: 042
  4. OMEPRAZOLE [Suspect]
     Indication: PRODUCT USED FOR UNKNOWN INDICATION
     Dosage: ORAL
     Route: 048
  5. LABETALOL HYDROCHLORIDE [Concomitant]
  6. ALBUMIN (HUMAN) [Concomitant]
  7. (NORADRENALINE TARTRATE) [Concomitant]
  8. (VASOPRESSIN) [Concomitant]
  9. DOBUTAMINE HYDROCHLORIDE [Concomitant]
  10. LORAZEPAM [Concomitant]
  11. LINEZOLID [Concomitant]
  12. PIPERACILLIN AND TAZOBACTAM [Concomitant]

REACTIONS (8)
  - DRUG INTERACTION [None]
  - HYPOPERFUSION [None]
  - HYPOTENSION [None]
  - ISCHAEMIC HEPATITIS [None]
  - PLATELET TOXICITY [None]
  - PNEUMONIA [None]
  - RENAL FAILURE ACUTE [None]
  - THROMBOCYTOPENIA [None]
